FAERS Safety Report 20124004 (Version 2)
Quarter: 2021Q4

REPORT INFORMATION
  Report Type: Spontaneous
  Country: US (occurrence: US)
  Receive Date: 20211129
  Receipt Date: 20211213
  Transmission Date: 20220303
  Serious: Yes (Hospitalization)
  Sender: FDA-Public Use
  Company Number: US-GW PHARMA-202111USGW05755

PATIENT

DRUGS (1)
  1. EPIDIOLEX [Suspect]
     Active Substance: CANNABIDIOL
     Indication: Product used for unknown indication
     Dosage: 28.76 MG/KG/DAY, 850 MILLIGRAM, BID
     Route: 048
     Dates: start: 20190425

REACTIONS (2)
  - Dehydration [Unknown]
  - Prescribed overdose [Unknown]
